FAERS Safety Report 13763254 (Version 2)
Quarter: 2017Q3

REPORT INFORMATION
  Report Type: Report from Study
  Country: US (occurrence: US)
  Receive Date: 20170718
  Receipt Date: 20170725
  Transmission Date: 20171127
  Serious: Yes (Hospitalization)
  Sender: FDA-Public Use
  Company Number: US-ROCHE-1577326

PATIENT
  Age: 58 Year
  Sex: Female
  Weight: 100.8 kg

DRUGS (5)
  1. LISINOPRIL. [Concomitant]
     Active Substance: LISINOPRIL
     Indication: HYPERTENSION
     Route: 048
  2. PRILOSEC [Concomitant]
     Active Substance: OMEPRAZOLE MAGNESIUM
     Indication: DYSPEPSIA
     Route: 048
     Dates: start: 20150227
  3. ATEZOLIZUMAB. [Suspect]
     Active Substance: ATEZOLIZUMAB
     Indication: NON-SMALL CELL LUNG CANCER
     Dosage: MOST RECENT DOSE OF MPDL3280A WAS ADMINISTERED ON 28/APR/2015 PRIOR TO AE ONSET?29/MAY/2015, ANOTHER
     Route: 042
     Dates: start: 20150428
  4. PACLITAXEL. [Suspect]
     Active Substance: PACLITAXEL
     Indication: NON-SMALL CELL LUNG CANCER
     Dosage: LAST DOSE PRIOR TO SAE: 438 (UNIT NOT REPORTED) ON 28 APR 2015.?29/MAY/2015, ANOTHER DOSE OF PACLITA
     Route: 042
     Dates: start: 20150428
  5. CARBOPLATIN. [Suspect]
     Active Substance: CARBOPLATIN
     Indication: NON-SMALL CELL LUNG CANCER
     Dosage: MOST RECENT DOSE  WAS ADMINISTERED ON 28/APR/2015 PRIOR TO AE ONSET, 780MG?INITIAL DOSE TO ACHIEVE A
     Route: 042
     Dates: start: 20150428

REACTIONS (1)
  - Febrile neutropenia [Recovered/Resolved]

NARRATIVE: CASE EVENT DATE: 20150510
